FAERS Safety Report 8264769-0 (Version None)
Quarter: 2012Q2

REPORT INFORMATION
  Report Type: 
  Country: None (occurrence: None)
  Receive Date: 20120406
  Receipt Date: 20120328
  Transmission Date: 20120825
  Serious: Yes (Hospitalization)
  Sender: FDA-Public Use
  Company Number: FR-BRISTOL-MYERS SQUIBB COMPANY-16349367

PATIENT
  Age: 68 Year
  Sex: Male

DRUGS (5)
  1. SODIUM CHLORIDE [Suspect]
     Dosage: 1 DF : 500ML/L,CHLORIDE SODIUM FRESENIUS(CALCIUM CHLORIDE DIHYDRATE),SOLUTION FOR INJECTION
     Route: 042
     Dates: start: 20111228, end: 20111228
  2. LEUCOVORIN CALCIUM [Suspect]
     Indication: COLON CANCER
     Dosage: POWDER FOR INJ,CL LEVOFOLINATE WINTHROP,RECD IN A BAG OF GLUCOSE 5% FLEEFLEX FRESENIUS KABI 250ML
     Route: 042
     Dates: start: 20111228, end: 20111228
  3. OMEXEL LP [Concomitant]
     Dosage: TAB
     Route: 048
  4. ERBITUX [Suspect]
     Indication: COLON CANCER
     Dosage: 5TH COURSE,RECONSTITUTED IN ABAG OF NACL 0.9%,500ML FLEEFLEX FRESENIUS KABI
     Route: 042
     Dates: start: 20111228, end: 20111228
  5. GLUCOSE [Suspect]
     Dosage: GLUCOSE FRESENIUS,SOLUTION FOR INJ
     Route: 042
     Dates: start: 20111228, end: 20111228

REACTIONS (2)
  - PRURITUS [None]
  - STEVENS-JOHNSON SYNDROME [None]
